FAERS Safety Report 11746329 (Version 1)
Quarter: 2015Q4

REPORT INFORMATION
  Report Type: Spontaneous
  Country: US (occurrence: None)
  Receive Date: 20151116
  Receipt Date: 20151116
  Transmission Date: 20160304
  Serious: Yes (Disabling)
  Sender: FDA-Public Use
  Company Number: None

PATIENT
  Age: 67 Year
  Sex: Male
  Weight: 71.67 kg

DRUGS (5)
  1. TRAVATAN [Concomitant]
     Active Substance: TRAVOPROST
  2. CIALIS [Suspect]
     Active Substance: TADALAFIL
     Indication: BENIGN PROSTATIC HYPERPLASIA
     Route: 048
     Dates: start: 20150303, end: 20151106
  3. VITAMIN D [Concomitant]
     Active Substance: CHOLECALCIFEROL
  4. CIALIS [Suspect]
     Active Substance: TADALAFIL
     Indication: PROSTATECTOMY
     Route: 048
     Dates: start: 20150303, end: 20151106
  5. MYBETRIQ [Concomitant]

REACTIONS (1)
  - Muscle tightness [None]

NARRATIVE: CASE EVENT DATE: 20150401
